FAERS Safety Report 17669621 (Version 1)
Quarter: 2020Q2

REPORT INFORMATION
  Report Type: Spontaneous
  Country: US (occurrence: US)
  Receive Date: 20200415
  Receipt Date: 20200415
  Transmission Date: 20200713
  Serious: Yes (Death)
  Sender: FDA-Public Use
  Company Number: US-FRESENIUS MEDICAL CARE RENAL THERAPIES GROUP-FMC-2004-000391

PATIENT
  Age: 69 Year
  Sex: Male
  Weight: 86 kg

DRUGS (23)
  1. DELFLEX WITH DEXTROSE 1.5% LOW MAGNESIUM LOW CALCIUM [Suspect]
     Active Substance: CALCIUM CHLORIDE\DEXTROSE\MAGNESIUM CHLORIDE\SODIUM CHLORIDE\SODIUM LACTATE
     Indication: END STAGE RENAL DISEASE
     Dosage: 6 EXCHANGES, FILL VOLUME 2200 ML, DWELL TIME 1 HOUR 13 MINUTE, LAST FILL 1500 ML
     Route: 033
     Dates: start: 20170207
  2. DELFLEX WITH DEXTROSE 4.25% LOW MAGNESIUM LOW CALCIUM [Suspect]
     Active Substance: CALCIUM CHLORIDE\DEXTROSE\MAGNESIUM CHLORIDE\SODIUM CHLORIDE\SODIUM LACTATE
     Indication: END STAGE RENAL DISEASE
     Dosage: 6 EXCHANGES, FILL VOLUME 2200 ML, DWELL TIME 1 HOUR 13 MINUTE, LAST FILL 1500 ML
     Route: 033
     Dates: start: 20170207
  3. INSULIN [Concomitant]
     Active Substance: INSULIN NOS
  4. CLOMIPHENE CITRATE. [Concomitant]
     Active Substance: CLOMIPHENE CITRATE
     Route: 048
  5. TERAZOSIN [Concomitant]
     Active Substance: TERAZOSIN HYDROCHLORIDE
  6. VITAMIN D3 [Concomitant]
     Active Substance: CHOLECALCIFEROL
  7. ALLOPURINOL. [Concomitant]
     Active Substance: ALLOPURINOL
     Dosage: DAILY
     Route: 048
  8. AMITRIPTYLINE [Concomitant]
     Active Substance: AMITRIPTYLINE
     Route: 048
  9. ATORVASTATIN [Concomitant]
     Active Substance: ATORVASTATIN
     Route: 048
  10. TRAMADOL. [Concomitant]
     Active Substance: TRAMADOL
     Route: 048
  11. DELFLEX WITH DEXTROSE 2.5% LOW MAGNESIUM LOW CALCIUM [Suspect]
     Active Substance: CALCIUM CHLORIDE\DEXTROSE\MAGNESIUM CHLORIDE\SODIUM CHLORIDE\SODIUM LACTATE
     Indication: END STAGE RENAL DISEASE
     Dosage: 6 EXCHANGES, FILL VOLUME 2200 ML, DWELL TIME 1 HOUR 13 MINUTE, LAST FILL 1500 ML
     Route: 033
     Dates: start: 20170207
  12. CLONIDINE. [Concomitant]
     Active Substance: CLONIDINE
     Route: 048
  13. CARVEDILOL. [Concomitant]
     Active Substance: CARVEDILOL
     Route: 048
  14. FERREX [Concomitant]
     Active Substance: FERRIC POLYSACCHARIDE COMPLEX
     Route: 048
  15. VENLAFAXINE [Concomitant]
     Active Substance: VENLAFAXINE HYDROCHLORIDE
  16. PANTOPRAZOLE [Concomitant]
     Active Substance: PANTOPRAZOLE
     Route: 048
  17. AMLODIPINE [Concomitant]
     Active Substance: AMLODIPINE BESYLATE
     Route: 048
  18. COLACE [Concomitant]
     Active Substance: DOCUSATE SODIUM
     Route: 048
  19. LEVOTHYROXINE. [Concomitant]
     Active Substance: LEVOTHYROXINE
     Route: 048
  20. VITAMIN B12 [Concomitant]
     Active Substance: CYANOCOBALAMIN
  21. NEPHRO VITE RX [Concomitant]
     Active Substance: ASCORBIC ACID\BIOTIN\CALCIUM PANTOTHENATE\CYANOCOBALAMIN\FOLIC ACID\NIACINAMIDE\PYRIDOXINE HYDROCHLORIDE\RIBOFLAVIN\THIAMINE MONONITRATE
  22. EPLERENONE. [Concomitant]
     Active Substance: EPLERENONE
  23. RENVELA [Concomitant]
     Active Substance: SEVELAMER CARBONATE

REACTIONS (1)
  - Fall [Fatal]
